FAERS Safety Report 5520225-1 (Version None)
Quarter: 2007Q4

REPORT INFORMATION
  Report Type: 
  Country: None (occurrence: None)
  Receive Date: 20071116
  Receipt Date: 20071112
  Transmission Date: 20080405
  Serious: Yes (Hospitalization)
  Sender: FDA-Public Use
  Company Number: JP-MERCK-0711USA02847

PATIENT
  Age: 76 Year
  Sex: Female

DRUGS (5)
  1. PRIMAXIN [Suspect]
     Indication: URINARY TRACT INFECTION
     Route: 065
     Dates: start: 20071110, end: 20071112
  2. PANSPORIN [Concomitant]
     Indication: URINARY TRACT INFECTION
     Route: 065
     Dates: end: 20071109
  3. MAINTATE [Concomitant]
     Route: 048
  4. [THERAPY UNSPECIFIED] [Concomitant]
     Route: 048
  5. CRAVIT [Suspect]
     Indication: URINARY TRACT INFECTION
     Route: 048
     Dates: start: 20071110

REACTIONS (1)
  - LIVER FUNCTION TEST ABNORMAL [None]
